FAERS Safety Report 8818073 (Version 1)
Quarter: 2012Q4

REPORT INFORMATION
  Report Type: 
  Country: FR (occurrence: FR)
  Receive Date: 20121001
  Receipt Date: 20121001
  Transmission Date: 20130627
  Serious: Yes (Other)
  Sender: FDA-Public Use
  Company Number: FR-TEVA-362026USA

PATIENT
  Age: 72 Year
  Sex: Female

DRUGS (1)
  1. TREANDA [Suspect]
     Indication: MULTIPLE MYELOMA
     Route: 042

REACTIONS (1)
  - Acute myeloid leukaemia [Unknown]
